FAERS Safety Report 18374572 (Version 1)
Quarter: 2020Q4

REPORT INFORMATION
  Report Type: Spontaneous
  Country: CA (occurrence: CA)
  Receive Date: 20201013
  Receipt Date: 20201013
  Transmission Date: 20210114
  Serious: Yes (Other)
  Sender: FDA-Public Use
  Company Number: CA-TEVA-2020-CA-1835948

PATIENT
  Age: 6 Decade
  Sex: Female

DRUGS (1)
  1. TEVA ROSUVASTATIN [Suspect]
     Active Substance: ROSUVASTATIN CALCIUM
     Indication: BLOOD CHOLESTEROL ABNORMAL
     Dates: start: 202004

REACTIONS (2)
  - Cholelithiasis [Unknown]
  - Bile duct stone [Unknown]

NARRATIVE: CASE EVENT DATE: 2020
